FAERS Safety Report 7540396-5 (Version None)
Quarter: 2011Q2

REPORT INFORMATION
  Report Type: 
  Country: None (occurrence: None)
  Receive Date: 20110603
  Receipt Date: 20110524
  Transmission Date: 20111010
  Serious: Yes (Other)
  Sender: FDA-Public Use
  Company Number: 927879

PATIENT
  Sex: Female

DRUGS (1)
  1. AMIDATE [Suspect]
     Indication: PRODUCT USED FOR UNKNOWN INDICATION
     Dates: start: 20110515

REACTIONS (3)
  - HYPOTENSION [None]
  - HYPOXIA [None]
  - CONVULSION [None]
